FAERS Safety Report 15679404 (Version 1)
Quarter: 2018Q4

REPORT INFORMATION
  Report Type: Spontaneous
  Country: US (occurrence: US)
  Receive Date: 20181203
  Receipt Date: 20181203
  Transmission Date: 20190205
  Serious: No
  Sender: FDA-Public Use
  Company Number: US-TEVA-2018-US-974495

PATIENT

DRUGS (1)
  1. MICROGESTIN FE [Suspect]
     Active Substance: ETHINYL ESTRADIOL\FERROUS FUMARATE\NORETHINDRONE ACETATE
     Dosage: STRENGTH: 1 MG / 20 MCG / 75 MG
     Route: 065

REACTIONS (3)
  - Product size issue [Unknown]
  - Product dose omission [Unknown]
  - Inappropriate schedule of product administration [Unknown]

NARRATIVE: CASE EVENT DATE: 2018
